FAERS Safety Report 8135905-1 (Version None)
Quarter: 2012Q1

REPORT INFORMATION
  Report Type: 
  Country: None (occurrence: None)
  Receive Date: 20120214
  Receipt Date: 20120202
  Transmission Date: 20120608
  Serious: Yes (Hospitalization)
  Sender: FDA-Public Use
  Company Number: DE-UCBSA-051052

PATIENT
  Sex: Female

DRUGS (2)
  1. CIMZIA [Suspect]
     Indication: RHEUMATOID ARTHRITIS
     Route: 058
  2. CORTISONE ACETATE [Suspect]
     Indication: RHEUMATOID ARTHRITIS
     Dosage: HIGHLY DOSED

REACTIONS (1)
  - STOMATITIS [None]
